FAERS Safety Report 8006269-9 (Version None)
Quarter: 2011Q4

REPORT INFORMATION
  Report Type: 
  Country: None (occurrence: None)
  Receive Date: 20111226
  Receipt Date: 20111212
  Transmission Date: 20120403
  Serious: Yes (Hospitalization)
  Sender: FDA-Public Use
  Company Number: PHHO2011IL14230

PATIENT
  Sex: Male

DRUGS (13)
  1. TEGRETOL [Suspect]
     Dosage: UNK
  2. AMLODIPINE [Suspect]
  3. METFORMIN HCL [Suspect]
     Indication: TYPE 2 DIABETES MELLITUS
     Dosage: 2550 MG, UNK
  4. LYRICA [Suspect]
     Dosage: UNK
  5. LOPRESSOR [Suspect]
  6. NITRATES [Concomitant]
  7. DIURETICS [Concomitant]
  8. BETA BLOCKING AGENTS [Concomitant]
  9. SAXAGLIPTIN [Suspect]
     Indication: TYPE 2 DIABETES MELLITUS
     Dosage: UNK
     Dates: start: 20101208
  10. HUMALOG [Suspect]
     Indication: TYPE 2 DIABETES MELLITUS
     Dosage: UNK IU, UNK
  11. ACE INHIBITORS [Concomitant]
  12. LANTUS [Suspect]
     Indication: TYPE 2 DIABETES MELLITUS
     Dosage: UNK IU, UNK
  13. ASPIRIN [Concomitant]

REACTIONS (2)
  - SYNCOPE [None]
  - ANGINA UNSTABLE [None]
